FAERS Safety Report 20167091 (Version 3)
Quarter: 2022Q2

REPORT INFORMATION
  Report Type: Spontaneous
  Country: DE (occurrence: DE)
  Receive Date: 20211209
  Receipt Date: 20220621
  Transmission Date: 20220720
  Serious: Yes (Other)
  Sender: FDA-Public Use
  Company Number: DE-NOVARTISPH-NVSC2021DE280583

PATIENT
  Age: 2 Year
  Sex: Male

DRUGS (4)
  1. TRAMETINIB [Suspect]
     Active Substance: TRAMETINIB
     Indication: Malignant melanoma
     Dosage: 0.035 MG/KG PER DOSE, DAILY
     Route: 048
  2. TRAMETINIB [Suspect]
     Active Substance: TRAMETINIB
     Indication: Congenital melanocytic naevus
     Dosage: 0.04 MG/KG, QD (0.035 MG/KG, PER DOSE DAILY)
     Route: 048
  3. AZACITIDINE [Suspect]
     Active Substance: AZACITIDINE
     Indication: Malignant melanoma
     Dosage: 75 MG/M2, QD  (75 MG/M2, PER DOSE QD FOR 7 CONSECUTIVE DAYS IN 28-DAY CYCLES)
     Route: 042
  4. AZACITIDINE [Suspect]
     Active Substance: AZACITIDINE
     Indication: Congenital melanocytic naevus

REACTIONS (5)
  - Malignant melanoma [Unknown]
  - Malignant neoplasm progression [Unknown]
  - Blood creatine phosphokinase increased [Unknown]
  - Product use issue [Unknown]
  - Product use in unapproved indication [Unknown]
